FAERS Safety Report 20727366 (Version 1)
Quarter: 2022Q2

REPORT INFORMATION
  Report Type: Spontaneous
  Country: US (occurrence: None)
  Receive Date: 20220419
  Receipt Date: 20220419
  Transmission Date: 20220721
  Serious: No
  Sender: FDA-Public Use
  Company Number: US-ROCHE-2823514

PATIENT
  Sex: Female

DRUGS (2)
  1. KADCYLA [Suspect]
     Active Substance: ADO-TRASTUZUMAB EMTANSINE
     Indication: Product used for unknown indication
     Route: 065
  2. ANASTROZOLE [Concomitant]
     Active Substance: ANASTROZOLE

REACTIONS (8)
  - Platelet count decreased [Unknown]
  - Alanine aminotransferase increased [Unknown]
  - Rash [Unknown]
  - Pruritus [Unknown]
  - Neuropathy peripheral [Unknown]
  - Fatigue [Unknown]
  - Arthralgia [Unknown]
  - Myalgia [Unknown]
